FAERS Safety Report 12860521 (Version 3)
Quarter: 2016Q4

REPORT INFORMATION
  Report Type: Report from Study
  Country: CA (occurrence: CA)
  Receive Date: 20161019
  Receipt Date: 20161218
  Transmission Date: 20170207
  Serious: Yes (Hospitalization, Other)
  Sender: FDA-Public Use
  Company Number: CA-BRISTOL-MYERS SQUIBB COMPANY-BMS-2016-016384

PATIENT
  Age: 51 Year
  Sex: Male

DRUGS (6)
  1. LOPRIN [Concomitant]
     Indication: PRODUCT USED FOR UNKNOWN INDICATION
     Dosage: UNK
     Route: 065
  2. ABATACEPT [Suspect]
     Active Substance: ABATACEPT
     Indication: PRODUCT USED FOR UNKNOWN INDICATION
     Dosage: 750 MG, Q3WK
     Route: 042
     Dates: start: 20150729
  3. SULFASALAZINE. [Concomitant]
     Active Substance: SULFASALAZINE
     Indication: PRODUCT USED FOR UNKNOWN INDICATION
     Dosage: UNK
     Route: 065
  4. ARAVA [Concomitant]
     Active Substance: LEFLUNOMIDE
     Indication: PRODUCT USED FOR UNKNOWN INDICATION
     Dosage: UNK
     Route: 065
  5. CLONAZEPAM. [Concomitant]
     Active Substance: CLONAZEPAM
     Indication: PRODUCT USED FOR UNKNOWN INDICATION
     Route: 065
  6. ABATACEPT [Suspect]
     Active Substance: ABATACEPT
     Indication: RHEUMATOID ARTHRITIS
     Dosage: 750 MG, Q4WK
     Route: 042
     Dates: start: 20150729

REACTIONS (12)
  - Blood pressure increased [Unknown]
  - Anaemia [Unknown]
  - Fatigue [Unknown]
  - Inflammation [Not Recovered/Not Resolved]
  - Thrombophlebitis superficial [Recovered/Resolved]
  - Blood pressure diastolic increased [Unknown]
  - Back pain [Not Recovered/Not Resolved]
  - Heart rate increased [Unknown]
  - Musculoskeletal stiffness [Not Recovered/Not Resolved]
  - Tremor [Recovered/Resolved]
  - Rheumatoid arthritis [Unknown]
  - Arthralgia [Not Recovered/Not Resolved]

NARRATIVE: CASE EVENT DATE: 20160301
